FAERS Safety Report 7842788-3 (Version None)
Quarter: 2011Q4

REPORT INFORMATION
  Report Type: 
  Country: None (occurrence: None)
  Receive Date: 20111025
  Receipt Date: 20100914
  Transmission Date: 20120403
  Serious: No
  Sender: FDA-Public Use
  Company Number: US-BAYER-201033699NA

PATIENT
  Sex: Female

DRUGS (3)
  1. SINGULAIR [Concomitant]
  2. PAXIL [Concomitant]
  3. CIPROFLOXACIN [Suspect]
     Indication: KIDNEY INFECTION
     Dosage: UNK
     Dates: end: 20090101

REACTIONS (2)
  - GROIN PAIN [None]
  - ARTHRALGIA [None]
